FAERS Safety Report 17713831 (Version 1)
Quarter: 2020Q2

REPORT INFORMATION
  Report Type: Spontaneous
  Country: CN (occurrence: CN)
  Receive Date: 20200427
  Receipt Date: 20200427
  Transmission Date: 20200714
  Serious: Yes (Life-Threatening, Hospitalization, Disabling, Other)
  Sender: FDA-Public Use
  Company Number: CN-BAYER-2020-070743

PATIENT
  Age: 76 Year
  Sex: Female
  Weight: 52 kg

DRUGS (3)
  1. GLUCOBAY [Suspect]
     Active Substance: ACARBOSE
     Indication: TYPE 2 DIABETES MELLITUS
     Dosage: 50 MG, TID
     Route: 048
     Dates: start: 20200330, end: 20200404
  2. REPAGLINIDE. [Interacting]
     Active Substance: REPAGLINIDE
     Indication: TYPE 2 DIABETES MELLITUS
     Dosage: 2 MG, TID
     Route: 048
     Dates: start: 20200403, end: 20200404
  3. INSULIN GLARGINE [Interacting]
     Active Substance: INSULIN GLARGINE
     Indication: TYPE 2 DIABETES MELLITUS
     Dosage: 10 U, QD
     Route: 058
     Dates: start: 20200401, end: 20200404

REACTIONS (4)
  - Hypoxic-ischaemic encephalopathy [Recovering/Resolving]
  - Hypoglycaemic coma [Recovering/Resolving]
  - Unresponsive to stimuli [Recovering/Resolving]
  - Drug interaction [None]

NARRATIVE: CASE EVENT DATE: 20200404
